FAERS Safety Report 4889259-4 (Version None)
Quarter: 2006Q1

REPORT INFORMATION
  Report Type: 
  Country: None (occurrence: None)
  Receive Date: 20060120
  Receipt Date: 20060109
  Transmission Date: 20060701
  Serious: Yes (Death)
  Sender: FDA-Public Use
  Company Number: 006392

PATIENT
  Sex: Female

DRUGS (2)
  1. NORDETTE 21 DAY (LEVONORGESTREL, ETHINYLESTRADIOL) TABLET [Suspect]
     Dosage: ORAL
     Route: 048
  2. AMOXICILLIN [Suspect]
     Dosage: ORAL
     Route: 048

REACTIONS (1)
  - NEUTROPENIA [None]
